FAERS Safety Report 6807099-3 (Version None)
Quarter: 2010Q2

REPORT INFORMATION
  Report Type: 
  Country: None (occurrence: None)
  Receive Date: 20100629
  Receipt Date: 20080711
  Transmission Date: 20101027
  Serious: No
  Sender: FDA-Public Use
  Company Number: US-PFIZER INC-2008057974

PATIENT
  Sex: Male
  Weight: 102.06 kg

DRUGS (2)
  1. TIKOSYN [Suspect]
     Indication: ATRIAL FIBRILLATION
     Route: 048
     Dates: start: 20070101
  2. ALTACE [Concomitant]
     Indication: HYPERTENSION

REACTIONS (1)
  - ASTHMA [None]
